FAERS Safety Report 12158243 (Version 1)
Quarter: 2016Q1

REPORT INFORMATION
  Report Type: Spontaneous
  Country: US (occurrence: US)
  Receive Date: 20160308
  Receipt Date: 20160308
  Transmission Date: 20160526
  Serious: Yes (Hospitalization)
  Sender: FDA-Public Use
  Company Number: US-JNJFOC-20150309540

PATIENT
  Age: 62 Year
  Sex: Male

DRUGS (46)
  1. LANTUS [Concomitant]
     Active Substance: INSULIN GLARGINE
  2. LOSARTAN. [Concomitant]
     Active Substance: LOSARTAN
  3. PROSCAR [Concomitant]
     Active Substance: FINASTERIDE
  4. IMBRUVICA [Suspect]
     Active Substance: IBRUTINIB
     Indication: CHRONIC LYMPHOCYTIC LEUKAEMIA
     Route: 048
     Dates: start: 20141113
  5. ACYCLOVIR. [Concomitant]
     Active Substance: ACYCLOVIR
  6. BENZONATATE. [Concomitant]
     Active Substance: BENZONATATE
  7. CLOTRIMAZOLE. [Concomitant]
     Active Substance: CLOTRIMAZOLE
  8. DOCUSATE [Concomitant]
     Active Substance: DOCUSATE
  9. KLOR-CON [Concomitant]
     Active Substance: POTASSIUM CHLORIDE
  10. NOVOLOG [Concomitant]
     Active Substance: INSULIN ASPART
  11. RANEXA [Concomitant]
     Active Substance: RANOLAZINE
  12. RANITIDINE [Concomitant]
     Active Substance: RANITIDINE\RANITIDINE HYDROCHLORIDE
  13. BUPROPION HYDROCHLORIDE. [Concomitant]
     Active Substance: BUPROPION HYDROCHLORIDE
  14. BACTRIM [Concomitant]
     Active Substance: SULFAMETHOXAZOLE\TRIMETHOPRIM
  15. FLUTICASONE PROPIONATE. [Concomitant]
     Active Substance: FLUTICASONE PROPIONATE
  16. POTASSIUM PHOSPHATE [Concomitant]
     Active Substance: POTASSIUM PHOSPHATE
  17. METOPROLOL. [Concomitant]
     Active Substance: METOPROLOL
  18. SUCRALFATE. [Concomitant]
     Active Substance: SUCRALFATE
  19. VITAMIN C [Concomitant]
     Active Substance: ASCORBIC ACID
  20. ALBUTEROL. [Concomitant]
     Active Substance: ALBUTEROL
  21. IPRATROPIUM BROMIDE. [Concomitant]
     Active Substance: IPRATROPIUM BROMIDE
  22. MELATONIN [Concomitant]
     Active Substance: MELATONIN
  23. MODAFINIL. [Concomitant]
     Active Substance: MODAFINIL
  24. NORCO [Concomitant]
     Active Substance: ACETAMINOPHEN\HYDROCODONE BITARTRATE
  25. SPIRIVA [Concomitant]
     Active Substance: TIOTROPIUM BROMIDE MONOHYDRATE
  26. THEOPHYLLINE [Concomitant]
     Active Substance: THEOPHYLLINE ANHYDROUS
  27. CETIRIZINE [Concomitant]
     Active Substance: CETIRIZINE HYDROCHLORIDE
  28. ALLOPURINOL. [Concomitant]
     Active Substance: ALLOPURINOL
  29. GUAIFENESIN. [Concomitant]
     Active Substance: GUAIFENESIN
  30. HYDROCHLOROTHIAZIDE. [Concomitant]
     Active Substance: HYDROCHLOROTHIAZIDE
  31. LIDODERM [Concomitant]
     Active Substance: LIDOCAINE
  32. NITROGLYCERIN. [Concomitant]
     Active Substance: NITROGLYCERIN
  33. VITAMIN B COMPLEX [Concomitant]
     Active Substance: CYANOCOBALAMIN\DEXPANTHENOL\NIACINAMIDE\PYRIDOXINE HYDROCHLORIDE\RIBOFLAVIN 5^-PHOSPHATE SODIUM\THIAMINE HYDROCHLORIDE\VITAMIN B COMPLEX
  34. ZINC SULFATE [Concomitant]
     Active Substance: ZINC SULFATE\ZINC SULFATE ANHYDROUS
  35. BENADRYL [Concomitant]
     Active Substance: DIPHENHYDRAMINE HYDROCHLORIDE
  36. BUDESONIDE. [Concomitant]
     Active Substance: BUDESONIDE
  37. GABAPENTIN. [Concomitant]
     Active Substance: GABAPENTIN
  38. MAGNESIUM [Concomitant]
     Active Substance: MAGNESIUM
  39. ONDANSETRON [Concomitant]
     Active Substance: ONDANSETRON
  40. PANTOPRAZOLE [Concomitant]
     Active Substance: PANTOPRAZOLE SODIUM
  41. PENTOXIFYLLINE. [Concomitant]
     Active Substance: PENTOXIFYLLINE
  42. TRAZODONE [Concomitant]
     Active Substance: TRAZODONE HYDROCHLORIDE
  43. ISOSORBIDE. [Concomitant]
     Active Substance: ISOSORBIDE
  44. REQUIP [Concomitant]
     Active Substance: ROPINIROLE HYDROCHLORIDE
  45. SEROQUEL [Concomitant]
     Active Substance: QUETIAPINE FUMARATE
  46. TRIAMTERENE. [Concomitant]
     Active Substance: TRIAMTERENE

REACTIONS (1)
  - Cellulitis [Not Recovered/Not Resolved]

NARRATIVE: CASE EVENT DATE: 20150305
